FAERS Safety Report 6386230-0 (Version None)
Quarter: 2009Q4

REPORT INFORMATION
  Report Type: 
  Country: None (occurrence: None)
  Receive Date: 20091002
  Receipt Date: 20090924
  Transmission Date: 20100525
  Serious: Yes (Other)
  Sender: FDA-Public Use
  Company Number: US-ELI_LILLY_AND_COMPANY-US200909005776

PATIENT
  Age: 45 Year

DRUGS (2)
  1. GEMZAR [Suspect]
     Indication: NON-SMALL CELL LUNG CANCER
     Dosage: 1000 MG/M2, UNK
     Dates: end: 20090901
  2. COMPAZINE [Concomitant]

REACTIONS (2)
  - HEPATIC FAILURE [None]
  - JAUNDICE CHOLESTATIC [None]
